FAERS Safety Report 18210706 (Version 1)
Quarter: 2020Q3

REPORT INFORMATION
  Report Type: Spontaneous
  Country: CA (occurrence: CA)
  Receive Date: 20200829
  Receipt Date: 20200829
  Transmission Date: 20201103
  Serious: Yes (Hospitalization)
  Sender: FDA-Public Use
  Company Number: CA-TEVA-2020-CA-1819037

PATIENT
  Age: 55 Year
  Sex: Female
  Weight: 51 kg

DRUGS (15)
  1. FENTANYL. [Concomitant]
     Active Substance: FENTANYL
  2. ATENOLOL (PREMPHARM) [Concomitant]
     Active Substance: ATENOLOL
  3. HYDROMORPHONE [Concomitant]
     Active Substance: HYDROMORPHONE
  4. IRON [Concomitant]
     Active Substance: IRON
  5. SALAGEN [Concomitant]
     Active Substance: PILOCARPINE HYDROCHLORIDE
  6. VITAMIN D [Concomitant]
     Active Substance: VITAMIN D NOS
  7. LANSOPRAZOLE. [Concomitant]
     Active Substance: LANSOPRAZOLE
  8. CISPLATIN INJECTION [Suspect]
     Active Substance: CISPLATIN
  9. FOLIC ACID. [Concomitant]
     Active Substance: FOLIC ACID
  10. AMITRIPTYLINE [Concomitant]
     Active Substance: AMITRIPTYLINE
  11. CINACALCET FILM COATED TABLET [Concomitant]
     Active Substance: CINACALCET HYDROCHLORIDE
  12. LIDOCAINE. [Concomitant]
     Active Substance: LIDOCAINE
  13. OCTREOTIDE. [Concomitant]
     Active Substance: OCTREOTIDE
  14. SENNA [Concomitant]
     Active Substance: SENNA LEAF\SENNOSIDES\SENNOSIDES A AND B
  15. VITAMIN B12 [Concomitant]
     Active Substance: CYANOCOBALAMIN

REACTIONS (7)
  - Anaemia [Recovered/Resolved]
  - Postoperative wound infection [Recovered/Resolved]
  - Chills [Recovered/Resolved]
  - Pyrexia [Recovered/Resolved]
  - Febrile neutropenia [Recovered/Resolved]
  - Mucosal inflammation [Recovered/Resolved]
  - Staphylococcal infection [Recovered/Resolved]
